FAERS Safety Report 18505799 (Version 1)
Quarter: 2020Q4

REPORT INFORMATION
  Report Type: Spontaneous
  Country: AU (occurrence: AU)
  Receive Date: 20201116
  Receipt Date: 20201116
  Transmission Date: 20210114
  Serious: Yes (Death, Hospitalization)
  Sender: FDA-Public Use
  Company Number: AU-ABBVIE-14P-008-1194087-00

PATIENT
  Age: 73 Year
  Sex: Female

DRUGS (2)
  1. DUODOPA [Suspect]
     Active Substance: CARBIDOPA\LEVODOPA
  2. DUODOPA [Suspect]
     Active Substance: CARBIDOPA\LEVODOPA
     Indication: PARKINSON^S DISEASE
     Dosage: 4.3ML/HR CONTINUOUS DOSE, 24 HOURS A DAY, 20 MG/ML 5 MG/ML.
     Route: 050
     Dates: start: 20131029

REACTIONS (15)
  - Disseminated intravascular coagulation [Unknown]
  - Parkinson^s disease [Unknown]
  - Drug ineffective [Unknown]
  - Inflammation [Unknown]
  - Diarrhoea [Unknown]
  - Immune system disorder [Fatal]
  - Product residue present [Unknown]
  - Myelodysplastic syndrome [Unknown]
  - Cardiac arrest [Fatal]
  - Bile duct stent insertion [Recovered/Resolved]
  - Haemorrhage [Not Recovered/Not Resolved]
  - Pancytopenia [Unknown]
  - Infection [Recovered/Resolved]
  - Cholangitis [Recovered/Resolved]
  - Freezing phenomenon [Unknown]

NARRATIVE: CASE EVENT DATE: 201311
